FAERS Safety Report 9190887 (Version 2)
Quarter: 2013Q2

REPORT INFORMATION
  Report Type: Spontaneous
  Country: US (occurrence: US)
  Receive Date: 20130326
  Receipt Date: 20130403
  Transmission Date: 20140414
  Serious: Yes (Other)
  Sender: FDA-Public Use
  Company Number: US-JNJFOC-20130309816

PATIENT
  Age: 50 Year
  Sex: Female
  Weight: 65.77 kg

DRUGS (13)
  1. BENADRYL ALLERGY [Suspect]
     Indication: SLEEP DISORDER THERAPY
     Route: 048
     Dates: start: 20130305, end: 20130307
  2. TYLENOL PM [Suspect]
     Indication: SLEEP DISORDER THERAPY
     Route: 065
  3. RITALIN [Suspect]
     Indication: ASTHENIA
     Dosage: 20MG, 3 TIMES A DAY FROM WEEK.
     Route: 065
     Dates: start: 20130306
  4. RITALIN [Suspect]
     Indication: AFFECTIVE DISORDER
     Dosage: 20MG, 3 TIMES A DAY FROM WEEK.
     Route: 065
     Dates: start: 20130306
  5. RITALIN [Suspect]
     Indication: HYPERSOMNIA
     Dosage: 20MG, 3 TIMES A DAY FROM WEEK.
     Route: 065
     Dates: start: 20130306
  6. BUPROPION [Suspect]
     Indication: DEPRESSION
     Dosage: 150MG FOR ONE AND HALF WEEKS
     Route: 065
  7. ABILIFY [Suspect]
     Indication: MOOD SWINGS
     Dosage: 5MG FROM YEARS
     Route: 065
  8. CITALOPRAM [Suspect]
     Indication: DEPRESSION
     Dosage: 20MG/DAY FROM YEARS
     Route: 065
  9. PERCOCET [Suspect]
     Indication: NEURALGIA
     Dosage: 5MG/325MG 4 TIMES A DAY FROM YEARS
     Route: 065
  10. SIMVASTATIN [Suspect]
     Indication: BLOOD CHOLESTEROL
     Dosage: 40MG/DAY FROM YEARS
     Route: 065
  11. CLONAZEPAM [Suspect]
     Indication: SLEEP DISORDER THERAPY
     Dosage: 0.5MG 3 TIMES AT NIGHT FROM YEARS
     Route: 065
  12. XANAX [Suspect]
     Indication: SLEEP DISORDER THERAPY
     Route: 065
  13. TOPAMAX [Concomitant]
     Indication: PAIN IN EXTREMITY
     Dosage: 250MG/DAY FROM YEARS
     Route: 065

REACTIONS (6)
  - Hallucination [Recovered/Resolved]
  - Abnormal dreams [Recovered/Resolved]
  - Insomnia [Recovered/Resolved]
  - Expired drug administered [Unknown]
  - Overdose [Unknown]
  - Off label use [Unknown]
